FAERS Safety Report 5114966-8 (Version None)
Quarter: 2006Q3

REPORT INFORMATION
  Report Type: 
  Country: None (occurrence: None)
  Receive Date: 20060926
  Receipt Date: 20060922
  Transmission Date: 20061208
  Serious: Yes (Hospitalization)
  Sender: FDA-Public Use
  Company Number: US-MERCK-0609USA05019

PATIENT
  Age: 69 Year
  Sex: Male

DRUGS (8)
  1. ZOCOR [Suspect]
     Indication: HYPERLIPIDAEMIA
     Route: 048
  2. CYCLOSPORINE [Suspect]
     Route: 065
  3. URSODIOL [Concomitant]
     Route: 065
  4. MYCOPHENOLATE SODIUM [Concomitant]
     Route: 065
  5. PREDNISONE [Concomitant]
     Route: 065
  6. INSULIN, ISOPHANE [Concomitant]
     Route: 065
  7. ATENOLOL [Concomitant]
     Route: 065
  8. AMLODIPINE BESYLATE [Suspect]
     Route: 065

REACTIONS (3)
  - DRUG INTERACTION [None]
  - DRUG PRESCRIBING ERROR [None]
  - RHABDOMYOLYSIS [None]
